FAERS Safety Report 6220094-0 (Version None)
Quarter: 2009Q2

REPORT INFORMATION
  Report Type: 
  Country: None (occurrence: None)
  Receive Date: 20090609
  Receipt Date: 20090527
  Transmission Date: 20091009
  Serious: No
  Sender: FDA-Public Use
  Company Number: MX-ELI_LILLY_AND_COMPANY-MX200903006213

PATIENT
  Age: 58 Year
  Sex: Male
  Weight: 106 kg

DRUGS (9)
  1. HUMULIN 70/30 [Suspect]
     Indication: DIABETES MELLITUS
     Dosage: 30 IU, EACH MORNING
     Route: 058
     Dates: start: 20090201, end: 20090320
  2. HUMULIN 70/30 [Suspect]
     Dosage: 12 IU, EACH EVENING
     Route: 058
     Dates: start: 20090201, end: 20090320
  3. HUMULIN 70/30 [Suspect]
     Dosage: 20 IU, EACH MORNING
     Route: 058
  4. ENALAPRIL [Concomitant]
     Indication: HYPERTENSION
     Dosage: UNK, UNKNOWN
     Route: 065
  5. METOPROLOL SUCCINATE [Concomitant]
     Indication: HYPERTENSION
     Dosage: UNK, UNKNOWN
     Route: 065
  6. METAMIZOLE SODIUM [Concomitant]
     Indication: PAIN
     Dosage: UNK, UNKNOWN
     Route: 065
  7. SIMPLEX [Concomitant]
     Dosage: UNK, UNKNOWN
     Route: 065
  8. NEURONTIN [Concomitant]
     Indication: BACK PAIN
     Dosage: 600 MG, UNKNOWN
     Route: 065
  9. HUMULIN N [Concomitant]
     Dosage: 20 IU, EACH MORNING
     Route: 065

REACTIONS (6)
  - BACK PAIN [None]
  - BLOOD GLUCOSE [None]
  - BLOOD PRESSURE ABNORMAL [None]
  - FEELING ABNORMAL [None]
  - FEELING DRUNK [None]
  - VISION BLURRED [None]
